FAERS Safety Report 7043901-0 (Version None)
Quarter: 2010Q4

REPORT INFORMATION
  Report Type: 
  Country: None (occurrence: None)
  Receive Date: 20101012
  Receipt Date: 20101012
  Transmission Date: 20110411
  Serious: Yes (Other)
  Sender: FDA-Public Use
  Company Number: None

PATIENT
  Sex: Male

DRUGS (1)
  1. PAXIL [Suspect]
     Dates: start: 20081001, end: 20101010

REACTIONS (7)
  - BACK PAIN [None]
  - CONDITION AGGRAVATED [None]
  - HEADACHE [None]
  - LOCAL SWELLING [None]
  - OCULAR HYPERAEMIA [None]
  - PETECHIAE [None]
  - VASODILATATION [None]
